FAERS Safety Report 24084086 (Version 1)
Quarter: 2024Q3

REPORT INFORMATION
  Report Type: Spontaneous
  Country: US (occurrence: None)
  Receive Date: 20240711
  Receipt Date: 20240711
  Transmission Date: 20241017
  Serious: Yes (Other)
  Sender: Public
  Company Number: None

PATIENT
  Age: 65 Year
  Sex: Female

DRUGS (1)
  1. RINVOQ [Suspect]
     Active Substance: UPADACITINIB
     Indication: Rheumatoid arthritis
     Dosage: 15 MG DAILY ORAL?
     Route: 048
     Dates: start: 20231107, end: 20240425

REACTIONS (6)
  - Dizziness postural [None]
  - Therapy cessation [None]
  - Pharyngitis [None]
  - Ear infection [None]
  - Rhinitis [None]
  - Drug hypersensitivity [None]

NARRATIVE: CASE EVENT DATE: 20240711
